FAERS Safety Report 5817752-6 (Version None)
Quarter: 2008Q3

REPORT INFORMATION
  Report Type: 
  Country: None (occurrence: None)
  Receive Date: 20080722
  Receipt Date: 20080718
  Transmission Date: 20090109
  Serious: Yes (Hospitalization, Other)
  Sender: FDA-Public Use
  Company Number: PHEH2007US09687

PATIENT
  Sex: Female
  Weight: 92.97 kg

DRUGS (21)
  1. ESTRADERM [Suspect]
     Indication: MENOPAUSE
     Dosage: 0.5 MG, UNK
     Route: 062
     Dates: start: 19910101, end: 19960101
  2. PREMARIN [Suspect]
     Indication: MENOPAUSE
     Route: 048
     Dates: start: 19990101, end: 20010101
  3. PROVERA [Suspect]
     Indication: MENOPAUSE
     Dosage: 2.5 MG, UNK
     Route: 048
     Dates: start: 19910101, end: 19990101
  4. CYCRIN [Suspect]
     Indication: MENOPAUSE
     Dosage: 5 MG, UNK
     Route: 048
     Dates: start: 19990101, end: 19990101
  5. MPA [Suspect]
     Indication: MENOPAUSE
     Dosage: 5 MG, UNK
     Route: 048
     Dates: start: 19990101, end: 20000101
  6. ZESTRIL [Concomitant]
     Dosage: 20 MG, BID
     Route: 048
  7. METOPROLOL TARTRATE [Concomitant]
     Dosage: 50 MG, BID
     Route: 048
  8. LORTAB [Concomitant]
     Dosage: 5 MG, Q4-6H
     Route: 048
  9. LIPITOR [Concomitant]
     Dosage: 10 MG, QD
     Route: 048
  10. ALLOPURINOL [Concomitant]
     Dosage: 100 MG, QD
     Route: 048
  11. SYNTHROID [Concomitant]
     Indication: THYROID DISORDER
     Dosage: 0.075 MG, QD
     Route: 048
     Dates: start: 19960101
  12. CELEXA [Concomitant]
     Dosage: 20 MG, QD
     Route: 048
  13. RANITIDINE HCL [Concomitant]
     Dosage: 150 MG, BID
     Route: 048
  14. NITROGLYCERIN [Concomitant]
     Dosage: 0.2 MG, QD
     Route: 062
  15. NORTRIPTYLINE HCL [Concomitant]
     Dosage: 25 MG, QD
     Route: 048
  16. NORVASC [Concomitant]
     Dosage: 10 MG, BID
     Route: 048
  17. CARDIZEM [Concomitant]
     Dosage: 240 MG, UNK
     Route: 048
  18. CAPOTEN [Concomitant]
     Dosage: 25 MG, UNK
     Route: 048
  19. MEVACOR [Concomitant]
     Dosage: 25 MG, UNK
     Route: 048
  20. VOLTAREN [Concomitant]
     Dosage: 75 MG, UNK
     Route: 048
  21. ZAROXOLYN [Concomitant]
     Dosage: 25 MG, UNK
     Route: 048

REACTIONS (48)
  - ACUTE MYOCARDIAL INFARCTION [None]
  - ADENOMA BENIGN [None]
  - ARACHNOID CYST [None]
  - ARTERIAL STENOSIS [None]
  - ARTERIOSCLEROSIS [None]
  - BREAST CANCER [None]
  - BREAST MASS [None]
  - CEREBRAL ISCHAEMIA [None]
  - CEREBROVASCULAR ACCIDENT [None]
  - CEREBROVASCULAR DISORDER [None]
  - CHOLECYSTECTOMY [None]
  - CHOLECYSTITIS [None]
  - CHOLELITHIASIS [None]
  - CHRONIC OBSTRUCTIVE PULMONARY DISEASE [None]
  - COLONIC POLYP [None]
  - CORONARY ANGIOPLASTY [None]
  - CORONARY ARTERY OCCLUSION [None]
  - DEPRESSION [None]
  - DIABETES MELLITUS [None]
  - DIALYSIS [None]
  - DIVERTICULUM [None]
  - ENDOMETRIAL DISORDER [None]
  - GLOMERULONEPHRITIS [None]
  - GOUTY ARTHRITIS [None]
  - HYPERTENSION [None]
  - HYPOTHYROIDISM [None]
  - INFECTION [None]
  - INTERMITTENT CLAUDICATION [None]
  - INTERVERTEBRAL DISC PROTRUSION [None]
  - LUMBAR RADICULOPATHY [None]
  - LYMPHADENECTOMY [None]
  - MACROCYTOSIS [None]
  - MACULAR DEGENERATION [None]
  - MALIGNANT BREAST LUMP REMOVAL [None]
  - MENINGIOMA [None]
  - MYELODYSPLASTIC SYNDROME [None]
  - NERVOUS SYSTEM DISORDER [None]
  - PELVIC FLUID COLLECTION [None]
  - PERIPHERAL VASCULAR DISORDER [None]
  - PERITONEAL DIALYSIS [None]
  - PYREXIA [None]
  - RADIOTHERAPY [None]
  - REFRACTORY ANAEMIA [None]
  - RENAL ATROPHY [None]
  - RENAL FAILURE CHRONIC [None]
  - SPINAL COLUMN STENOSIS [None]
  - TREMOR [None]
  - VASCULAR GRAFT [None]
